FAERS Safety Report 9825641 (Version 1)
Quarter: 2013Q4

REPORT INFORMATION
  Report Type: Spontaneous
  Country: US (occurrence: None)
  Receive Date: 20131028
  Receipt Date: 20131028
  Transmission Date: 20140711
  Serious: Yes (Other)
  Sender: FDA-Public Use
  Company Number: 2013US002364

PATIENT
  Age: 73 Year
  Sex: Male
  Weight: 91 kg

DRUGS (14)
  1. ICLUSIG [Suspect]
     Indication: CHRONIC MYELOID LEUKAEMIA
     Route: 048
     Dates: start: 20130524
  2. SIMVASTATIN (SIMVASTATIN) TABLET [Concomitant]
  3. PRILOSEC (OMEPRAZOLE) [Concomitant]
  4. VITAMIN D (VITAMIN D) [Concomitant]
  5. LISINOPRIL (LISINOPRIL) [Concomitant]
  6. METOPROLOL (METOPROLOL) [Concomitant]
  7. GLIPIZIDE (GLIPIZIDE) TABLET [Concomitant]
  8. ALLOPURINOL (ALLOPURINOL) [Concomitant]
  9. FLOMAX (TAMSULOSIN HYDROCHLORIDE) [Concomitant]
  10. FINASTERIDE (FINASTERIDE) [Concomitant]
  11. ZETIA (EZETIMIBE) [Concomitant]
  12. METOLAZONE (METOLAZONE) [Concomitant]
  13. LACTINEX (LACTOBACILLUS ACIDOPHILUS, LACTOBACILLUS BULGARICUS) [Concomitant]
  14. POTASSIUM (POTASSIUM) [Concomitant]

REACTIONS (4)
  - Joint swelling [None]
  - Oedema peripheral [None]
  - Hypoaesthesia [None]
  - Paraesthesia [None]
